FAERS Safety Report 7645121-5 (Version None)
Quarter: 2011Q3

REPORT INFORMATION
  Report Type: 
  Country: None (occurrence: None)
  Receive Date: 20110729
  Receipt Date: 20110720
  Transmission Date: 20111222
  Serious: Yes (Hospitalization)
  Sender: FDA-Public Use
  Company Number: CA-ASTRAZENECA-2011SE43681

PATIENT
  Age: 84 Year
  Sex: Female

DRUGS (1)
  1. NEXIUM [Suspect]
     Route: 048

REACTIONS (6)
  - BLOOD GLUCOSE DECREASED [None]
  - PNEUMONIA [None]
  - FRACTURE [None]
  - SURGERY [None]
  - URINARY TRACT INFECTION [None]
  - FALL [None]
